FAERS Safety Report 9442222 (Version 3)
Quarter: 2013Q3

REPORT INFORMATION
  Report Type: Spontaneous
  Country: BR (occurrence: BR)
  Receive Date: 20130806
  Receipt Date: 20130904
  Transmission Date: 20140515
  Serious: Yes (Life-Threatening)
  Sender: FDA-Public Use
  Company Number: BR-BAYER-2013-093856

PATIENT
  Age: 39 Year
  Sex: Female
  Weight: 49 kg

DRUGS (1)
  1. PROMIRA [Suspect]
     Indication: PNEUMONIA
     Dosage: 400 MG, QD
     Route: 048
     Dates: start: 20130728, end: 20130731

REACTIONS (9)
  - Pneumonia [Recovering/Resolving]
  - Anaphylactic shock [Recovering/Resolving]
  - Drug ineffective [None]
  - Swelling face [Recovering/Resolving]
  - Hypoaesthesia [Recovering/Resolving]
  - Breast discomfort [Recovering/Resolving]
  - Implant site exfoliation [Recovering/Resolving]
  - Breast discomfort [Recovering/Resolving]
  - Breast discomfort [Recovering/Resolving]
